FAERS Safety Report 10547688 (Version 1)
Quarter: 2014Q4

REPORT INFORMATION
  Report Type: Spontaneous
  Country: US (occurrence: None)
  Receive Date: 20141027
  Receipt Date: 20141027
  Transmission Date: 20150529
  Serious: Yes (Death)
  Sender: FDA-Public Use
  Company Number: None

PATIENT
  Age: 80 Year
  Sex: Female

DRUGS (1)
  1. EPOGEN [Suspect]
     Active Substance: ERYTHROPOIETIN
     Dosage: 10.000 UNITS 3X SUB Q
     Route: 058
     Dates: start: 20140603

REACTIONS (1)
  - Death [None]

NARRATIVE: CASE EVENT DATE: 20140912
